FAERS Safety Report 17431541 (Version 1)
Quarter: 2020Q1

REPORT INFORMATION
  Report Type: Spontaneous
  Country: FI (occurrence: FI)
  Receive Date: 20200218
  Receipt Date: 20200218
  Transmission Date: 20200409
  Serious: Yes (Other)
  Sender: FDA-Public Use
  Company Number: FI-JNJFOC-20200217256

PATIENT
  Age: 76 Year
  Sex: Female

DRUGS (4)
  1. RIVAROXABAN [Suspect]
     Active Substance: RIVAROXABAN
     Indication: ATRIAL FIBRILLATION
     Dosage: 20 MG, QD
     Route: 048
     Dates: start: 202001
  2. CARDACE                            /00885601/ [Concomitant]
     Active Substance: RAMIPRIL
     Dosage: UNK
  3. ATORVASTATIN [Concomitant]
     Active Substance: ATORVASTATIN
     Dosage: UNK
  4. BISOPROLOL [Concomitant]
     Active Substance: BISOPROLOL
     Dosage: UNK

REACTIONS (6)
  - Rash macular [Recovering/Resolving]
  - Arrhythmia [Unknown]
  - Paraesthesia [Recovering/Resolving]
  - Visual impairment [Recovering/Resolving]
  - Intentional product misuse [Unknown]
  - Eye haematoma [Recovered/Resolved]

NARRATIVE: CASE EVENT DATE: 202002
